FAERS Safety Report 6821427-4 (Version None)
Quarter: 2010Q3

REPORT INFORMATION
  Report Type: 
  Country: None (occurrence: None)
  Receive Date: 20100707
  Receipt Date: 20081110
  Transmission Date: 20110219
  Serious: Yes (Other)
  Sender: FDA-Public Use
  Company Number: US-PFIZER INC-2008066454

PATIENT
  Age: 59 Year
  Sex: Female

DRUGS (1)
  1. SERTRALINE HCL [Suspect]

REACTIONS (3)
  - DISTURBANCE IN SEXUAL AROUSAL [None]
  - LIBIDO DECREASED [None]
  - WITHDRAWAL SYNDROME [None]
